FAERS Safety Report 12353436 (Version 3)
Quarter: 2016Q3

REPORT INFORMATION
  Report Type: Report from Study
  Country: KR (occurrence: KR)
  Receive Date: 20160510
  Receipt Date: 20160920
  Transmission Date: 20161109
  Serious: Yes (Hospitalization)
  Sender: FDA-Public Use
  Company Number: PHHO2010KR022668

PATIENT
  Age: 47 Year
  Sex: Female
  Weight: 56 kg

DRUGS (3)
  1. PAZOPANIB [Suspect]
     Active Substance: PAZOPANIB
     Indication: OVARIAN CANCER
     Dosage: 800 MG, QD
     Route: 048
     Dates: start: 20100114, end: 20100128
  2. PAZOPANIB [Suspect]
     Active Substance: PAZOPANIB
     Indication: MALIGNANT PERITONEAL NEOPLASM
  3. PAZOPANIB [Suspect]
     Active Substance: PAZOPANIB
     Indication: FALLOPIAN TUBE CANCER

REACTIONS (3)
  - Diarrhoea [Recovered/Resolved]
  - Pharyngotonsillitis [Recovered/Resolved]
  - Palmar-plantar erythrodysaesthesia syndrome [Recovered/Resolved]

NARRATIVE: CASE EVENT DATE: 20100123
